FAERS Safety Report 8993501 (Version 1)
Quarter: 2013Q1

REPORT INFORMATION
  Report Type: Spontaneous
  Country: US (occurrence: US)
  Receive Date: 20130102
  Receipt Date: 20130102
  Transmission Date: 20140127
  Serious: Yes (Hospitalization)
  Sender: FDA-Public Use
  Company Number: PHHY2012US120115

PATIENT
  Age: 74 Year
  Sex: Female

DRUGS (1)
  1. ASCRIPTIN BUFFERED MAX STRENGTH CAPLETS [Suspect]
     Indication: HEADACHE
     Dosage: 1 DF, QD
     Route: 048

REACTIONS (5)
  - Fall [Recovered/Resolved]
  - Spinal fracture [Recovered/Resolved]
  - Pain in extremity [Unknown]
  - Breast mass [Recovered/Resolved]
  - Incorrect drug administration duration [Unknown]
